FAERS Safety Report 24021400 (Version 4)
Quarter: 2024Q3

REPORT INFORMATION
  Report Type: Spontaneous
  Country: CA (occurrence: CA)
  Receive Date: 20240627
  Receipt Date: 20240710
  Transmission Date: 20241017
  Serious: No
  Sender: ROCHE
  Company Number: CA-ROCHE-3466234

PATIENT
  Sex: Male

DRUGS (7)
  1. VABYSMO [Suspect]
     Active Substance: FARICIMAB\FARICIMAB-SVOA
     Indication: Diabetic retinal oedema
     Dosage: FIRST VABYSMO INJECTION?SUBSEQUENT DOSE ON: 19/JAN/2023, 22/DEC/2022, 23/NOV/2022, 25/OCT/2022, 27/S
     Route: 065
     Dates: start: 20220830
  2. VABYSMO [Suspect]
     Active Substance: FARICIMAB\FARICIMAB-SVOA
     Route: 065
     Dates: start: 20230216
  3. VABYSMO [Suspect]
     Active Substance: FARICIMAB\FARICIMAB-SVOA
     Dosage: SUBSEQUENT DOSE ON: 26/JUN/2023, 08/AUG/2023, 19/SEP/2023
     Route: 065
     Dates: start: 20230511
  4. VABYSMO [Suspect]
     Active Substance: FARICIMAB\FARICIMAB-SVOA
     Route: 065
     Dates: start: 20231103
  5. VABYSMO [Suspect]
     Active Substance: FARICIMAB\FARICIMAB-SVOA
     Route: 065
     Dates: start: 20231222
  6. VABYSMO [Suspect]
     Active Substance: FARICIMAB\FARICIMAB-SVOA
     Route: 065
     Dates: start: 20240215
  7. EYLEA [Concomitant]
     Active Substance: AFLIBERCEPT
     Dates: start: 20220204, end: 20220728

REACTIONS (1)
  - Vitreous floaters [Not Recovered/Not Resolved]
